APPROVED DRUG PRODUCT: CUPRIC SULFATE
Active Ingredient: CUPRIC SULFATE
Strength: EQ 0.4MG COPPER/ML
Dosage Form/Route: INJECTABLE;INJECTION
Application: A216324 | Product #001
Applicant: AMERICAN REGENT INC
Approved: Dec 16, 2022 | RLD: No | RS: Yes | Type: RX